FAERS Safety Report 8709824 (Version 2)
Quarter: 2012Q4

REPORT INFORMATION
  Report Type: 
  Country: US (occurrence: US)
  Receive Date: 20120806
  Receipt Date: 20120904
  Transmission Date: 20130627
  Serious: Yes (Hospitalization)
  Sender: FDA-Public Use
  Company Number: US-B.I. PHARMACEUTICALS,INC./RIDGEFIELD-2012-BP-17187BP

PATIENT
  Age: 83 None
  Sex: Female

DRUGS (6)
  1. PRADAXA [Suspect]
     Indication: ATRIAL FIBRILLATION
     Dosage: 300 mg
     Route: 048
     Dates: start: 20110819, end: 201204
  2. QUINALOPRIL/HCTZ [Concomitant]
     Indication: HYPERTENSION
     Route: 048
  3. SIMVASTATIN [Concomitant]
     Indication: BLOOD CHOLESTEROL INCREASED
     Dosage: 20 mg
     Route: 048
  4. ASPIRIN [Concomitant]
     Dosage: 81 mg
     Route: 048
  5. FLECAINIDE [Concomitant]
     Indication: ATRIAL FIBRILLATION
     Route: 048
     Dates: start: 201203
  6. OMEPRAZOLE [Concomitant]
     Dosage: 20 mg
     Route: 048
     Dates: start: 201204

REACTIONS (1)
  - Anaemia [Recovered/Resolved]
